FAERS Safety Report 5159225-2 (Version None)
Quarter: 2006Q4

REPORT INFORMATION
  Report Type: 
  Country: None (occurrence: None)
  Receive Date: 20061120
  Receipt Date: 20061017
  Transmission Date: 20070319
  Serious: Yes (Disabling, Other)
  Sender: FDA-Public Use
  Company Number: VNL_0282_2006

PATIENT
  Age: 69 Year
  Sex: Female

DRUGS (2)
  1. APOMORPHINE  HYDROCHLORIDE [Suspect]
     Indication: PARKINSON'S DISEASE
     Dosage: 5 MG QDAY SC
     Route: 058
  2. LORAZEPAM [Concomitant]

REACTIONS (23)
  - ANXIETY [None]
  - BRONCHITIS [None]
  - DECREASED APPETITE [None]
  - DEPRESSION [None]
  - DRUG ABUSER [None]
  - DRUG DEPENDENCE [None]
  - DRUG DIVERSION [None]
  - DRUG EFFECT DECREASED [None]
  - DYSPNOEA [None]
  - HYPERHIDROSIS [None]
  - HYPOTONIA [None]
  - INCORRECT DOSE ADMINISTERED [None]
  - INJECTION SITE ERYTHEMA [None]
  - INJECTION SITE HAEMORRHAGE [None]
  - INJECTION SITE INFECTION [None]
  - INJECTION SITE REACTION [None]
  - INSOMNIA [None]
  - MOOD ALTERED [None]
  - PALPITATIONS [None]
  - SKIN LESION [None]
  - SLEEP DISORDER [None]
  - WEIGHT DECREASED [None]
  - WRONG TECHNIQUE IN DRUG USAGE PROCESS [None]
